FAERS Safety Report 4851835-2 (Version None)
Quarter: 2005Q4

REPORT INFORMATION
  Report Type: 
  Country: None (occurrence: None)
  Receive Date: 20051209
  Receipt Date: 20051129
  Transmission Date: 20060501
  Serious: Yes (Disabling)
  Sender: FDA-Public Use
  Company Number: 2005162252

PATIENT
  Sex: Male

DRUGS (1)
  1. NEURONTIN [Suspect]
     Indication: ILL-DEFINED DISORDER
     Dosage: 100 MG

REACTIONS (3)
  - DRUG EFFECT INCREASED [None]
  - TREATMENT NONCOMPLIANCE [None]
  - UNDERWEIGHT [None]
